FAERS Safety Report 8049031-3 (Version None)
Quarter: 2012Q1

REPORT INFORMATION
  Report Type: 
  Country: None (occurrence: None)
  Receive Date: 20120117
  Receipt Date: 20120111
  Transmission Date: 20120608
  Serious: Yes (Disabling)
  Sender: FDA-Public Use
  Company Number: GXBR2011US005216

PATIENT
  Sex: Male
  Weight: 99.773 kg

DRUGS (1)
  1. AMPHETAMINE COMBINATION TABLETS [Suspect]
     Indication: ATTENTION DEFICIT/HYPERACTIVITY DISORDER
     Dosage: 30 MG, BID
     Route: 048
     Dates: start: 20111202

REACTIONS (7)
  - ABDOMINAL DISCOMFORT [None]
  - DRUG INEFFECTIVE [None]
  - EATING DISORDER [None]
  - WEIGHT INCREASED [None]
  - ACTIVITIES OF DAILY LIVING IMPAIRED [None]
  - QUALITY OF LIFE DECREASED [None]
  - DYSPHEMIA [None]
